FAERS Safety Report 6101037-7 (Version None)
Quarter: 2009Q1

REPORT INFORMATION
  Report Type: 
  Country: None (occurrence: None)
  Receive Date: 20090227
  Receipt Date: 20090220
  Transmission Date: 20090719
  Serious: Yes (Other)
  Sender: FDA-Public Use
  Company Number: KV200900207

PATIENT
  Age: 35 Year
  Sex: Female

DRUGS (1)
  1. PRECARE(PRENATAL VITAMIN) TABLET [Suspect]
     Indication: PREGNANCY
     Dosage: 1 TABLET, QD, ORAL
     Route: 048
     Dates: start: 20090119, end: 20090124

REACTIONS (3)
  - ABORTION SPONTANEOUS [None]
  - DRUG EXPOSURE DURING PREGNANCY [None]
  - POST PROCEDURAL HAEMORRHAGE [None]
